FAERS Safety Report 8800837 (Version 1)
Quarter: 2012Q4

REPORT INFORMATION
  Report Type: 
  Country: US (occurrence: US)
  Receive Date: 20120921
  Receipt Date: 20120921
  Transmission Date: 20130627
  Serious: Yes (Hospitalization)
  Sender: FDA-Public Use
  Company Number: US-WATSON-2012-15974

PATIENT
  Age: 76 None
  Sex: Male
  Weight: 70 kg

DRUGS (1)
  1. GLIPIZIDE [Suspect]
     Indication: TYPE 2 DIABETES MELLITUS
     Dosage: 10 mg, bid
     Route: 048
     Dates: end: 20120824

REACTIONS (2)
  - Vascular dementia [Not Recovered/Not Resolved]
  - Blood glucose decreased [Recovered/Resolved]
